FAERS Safety Report 15095140 (Version 2)
Quarter: 2018Q3

REPORT INFORMATION
  Report Type: Report from Study
  Country: None (occurrence: US)
  Receive Date: 20180702
  Receipt Date: 20180814
  Transmission Date: 20181010
  Serious: Yes (Other)
  Sender: FDA-Public Use
  Company Number: US-ABBVIE-18K-163-2374269-00

PATIENT
  Age: 16 Year
  Sex: Male
  Weight: 71.28 kg

DRUGS (6)
  1. PENTASA [Concomitant]
     Active Substance: MESALAMINE
     Indication: PRODUCT USED FOR UNKNOWN INDICATION
     Dosage: 500MG CR
     Route: 048
     Dates: start: 20120101
  2. IRON [Concomitant]
     Active Substance: IRON
     Indication: PRODUCT USED FOR UNKNOWN INDICATION
     Route: 048
     Dates: start: 20120101
  3. HUMIRA [Suspect]
     Active Substance: ADALIMUMAB
     Indication: CROHN^S DISEASE
     Route: 058
     Dates: start: 2013, end: 201803
  4. VITAMIN D [Concomitant]
     Active Substance: CHOLECALCIFEROL
     Indication: PRODUCT USED FOR UNKNOWN INDICATION
     Route: 048
     Dates: start: 20120101
  5. HUMIRA [Suspect]
     Active Substance: ADALIMUMAB
     Route: 058
     Dates: start: 201803
  6. HUMIRA [Suspect]
     Active Substance: ADALIMUMAB
     Route: 058

REACTIONS (20)
  - Streptococcal infection [Unknown]
  - Weight decreased [Recovering/Resolving]
  - Abdominal discomfort [Unknown]
  - Pyrexia [Unknown]
  - Abdominal wall cyst [Recovering/Resolving]
  - Dysbacteriosis [Recovering/Resolving]
  - Heart rate increased [Not Recovered/Not Resolved]
  - Nausea [Unknown]
  - Crohn^s disease [Unknown]
  - Fistula [Unknown]
  - Abscess [Unknown]
  - Pallor [Recovered/Resolved]
  - Diarrhoea [Recovering/Resolving]
  - Ulcer haemorrhage [Unknown]
  - Gastric ulcer [Recovering/Resolving]
  - Rectal haemorrhage [Recovering/Resolving]
  - Clostridium difficile infection [Recovering/Resolving]
  - Vomiting [Unknown]
  - Drug ineffective [Recovering/Resolving]
  - Asthma [Not Recovered/Not Resolved]

NARRATIVE: CASE EVENT DATE: 201703
